FAERS Safety Report 4289052-X (Version None)
Quarter: 2004Q1

REPORT INFORMATION
  Report Type: 
  Country: None (occurrence: None)
  Receive Date: 20040209
  Receipt Date: 20040202
  Transmission Date: 20041129
  Serious: Yes (Death, Hospitalization)
  Sender: FDA-Public Use
  Company Number: WAES 0402USA00114

PATIENT
  Age: 79 Year
  Sex: Female

DRUGS (3)
  1. ALFACALCIDOL [Concomitant]
     Dates: end: 20000511
  2. MANIDIPINE HYDROCHLORIDE [Concomitant]
     Dates: end: 20000511
  3. ZOCOR [Suspect]
     Indication: HYPERLIPIDAEMIA
     Route: 048
     Dates: start: 19920803, end: 20000511

REACTIONS (2)
  - DEATH [None]
  - UTERINE CANCER [None]
